FAERS Safety Report 8927184 (Version 1)
Quarter: 2012Q4

REPORT INFORMATION
  Report Type: 
  Country: US (occurrence: US)
  Receive Date: 20121127
  Receipt Date: 20121127
  Transmission Date: 20130627
  Serious: Yes (Hospitalization, Disabling, Other)
  Sender: FDA-Public Use
  Company Number: US-ASTRAZENECA-2012SE87528

PATIENT
  Age: 58 Year
  Sex: Male
  Weight: 99.8 kg

DRUGS (9)
  1. CRESTOR [Suspect]
     Indication: HYPERCHOLESTEROLAEMIA
     Route: 048
  2. LISINOPRIL [Suspect]
     Indication: BLOOD PRESSURE ABNORMAL
     Route: 048
  3. LIPITOR [Suspect]
     Route: 065
  4. METFORMIN [Suspect]
     Route: 065
  5. VYTORIN [Suspect]
     Route: 065
  6. ASPIRIN [Concomitant]
     Indication: ANTICOAGULANT THERAPY
     Route: 048
  7. LANTUS [Concomitant]
     Indication: DIABETES MELLITUS
  8. HUMALOG [Concomitant]
     Indication: DIABETES MELLITUS
  9. JANUVIA [Concomitant]
     Indication: DIABETES MELLITUS

REACTIONS (12)
  - Myocardial infarction [Unknown]
  - Injury [Unknown]
  - Chest pain [Unknown]
  - Musculoskeletal stiffness [Unknown]
  - Trigger finger [Unknown]
  - Back pain [Unknown]
  - Blood pressure abnormal [Unknown]
  - Type 2 diabetes mellitus [Unknown]
  - Pain in extremity [Unknown]
  - Pain in extremity [Unknown]
  - Off label use [Unknown]
  - Intentional drug misuse [Unknown]
